FAERS Safety Report 25919910 (Version 1)
Quarter: 2025Q4

REPORT INFORMATION
  Report Type: Spontaneous
  Country: US (occurrence: None)
  Receive Date: 20251010
  Receipt Date: 20251010
  Transmission Date: 20260118
  Serious: Yes (Hospitalization)
  Sender: FDA-CTU
  Company Number: None

PATIENT
  Sex: Female

DRUGS (1)
  1. COSENTYX [Suspect]
     Active Substance: SECUKINUMAB
     Indication: Psoriatic arthropathy
     Dosage: 150 ML EVERY 4 WEEKS SUBCUTANEOUS?
     Route: 058
     Dates: start: 20250612

REACTIONS (3)
  - Localised infection [None]
  - Bacterial infection [None]
  - Therapy interrupted [None]
